FAERS Safety Report 24548904 (Version 1)
Quarter: 2024Q4

REPORT INFORMATION
  Report Type: Spontaneous
  Country: GB (occurrence: GB)
  Receive Date: 20241025
  Receipt Date: 20241025
  Transmission Date: 20250114
  Serious: Yes (Other)
  Sender: RANBAXY
  Company Number: GB-MHRA-TPP22835348C1489166YC1728560931674

PATIENT
  Age: 43 Year
  Sex: Male
  Weight: 109 kg

DRUGS (12)
  1. CIPROFLOXACIN [Suspect]
     Active Substance: CIPROFLOXACIN
     Indication: Ill-defined disorder
     Dosage: UNK
     Route: 065
     Dates: start: 20240907
  2. OMEPRAZOLE [Concomitant]
     Active Substance: OMEPRAZOLE
     Indication: Ill-defined disorder
     Dosage: TAKE ONE DAILY TO REDUCE STOMACH ACID
     Route: 065
     Dates: start: 20231101
  3. ACETYLCYSTEINE [Concomitant]
     Active Substance: ACETYLCYSTEINE
     Indication: Ill-defined disorder
     Dosage: AS DIRECTED BY OPHTHALOLOGIST
     Route: 065
     Dates: start: 20231101
  4. AZELASTINE [Concomitant]
     Active Substance: AZELASTINE
     Indication: Ill-defined disorder
     Dosage: USE 2-3 TIMES DAILY AS DIRECTED BY YOUR SPECIALIST
     Route: 065
     Dates: start: 20231101
  5. CARBOCYSTEINE [Concomitant]
     Active Substance: CARBOCYSTEINE
     Indication: Ill-defined disorder
     Dosage: TWO TO BE TAKEN THREE TIMES A DAY
     Route: 065
     Dates: start: 20231101, end: 20241008
  6. HYLO NIGHT [Concomitant]
     Indication: Ill-defined disorder
     Dosage: AS DIRECTED BY OPHTHALMOLOGIST
     Route: 065
     Dates: start: 20231101
  7. HYALURONATE SODIUM [Concomitant]
     Active Substance: HYALURONATE SODIUM
     Indication: Ill-defined disorder
     Dosage: USE UP TO THREE TIMES DAILY
     Route: 065
     Dates: start: 20231101
  8. SOLIFENACIN [Concomitant]
     Active Substance: SOLIFENACIN
     Indication: Ill-defined disorder
     Dosage: TAKE ONE DAILY
     Route: 065
     Dates: start: 20231101
  9. FLUTICASONE [Concomitant]
     Active Substance: FLUTICASONE
     Indication: Ill-defined disorder
     Dosage: USE AS DIRECTED BY ENT CONSULTANT
     Route: 065
     Dates: start: 20240115
  10. LORATADINE [Concomitant]
     Active Substance: LORATADINE
     Indication: Ill-defined disorder
     Dosage: ONE TO BE TAKEN EACH DAY
     Route: 065
     Dates: start: 20240604
  11. ZOLPIDEM [Concomitant]
     Active Substance: ZOLPIDEM TARTRATE
     Indication: Ill-defined disorder
     Dosage: TAKE ONE AT NIGHT IF NEEDED FOR SLEEP
     Route: 065
     Dates: start: 20240628
  12. CITALOPRAM [Concomitant]
     Active Substance: CITALOPRAM
     Indication: Ill-defined disorder
     Dosage: TAKE ONE TABLET ONCE A DAY ( TOTAL DOSE 30MG)
     Route: 065
     Dates: start: 20240703

REACTIONS (4)
  - Tendon pain [Not Recovered/Not Resolved]
  - Myalgia [Unknown]
  - Asthenia [Unknown]
  - Paraesthesia [Unknown]

NARRATIVE: CASE EVENT DATE: 20240909
